FAERS Safety Report 24218174 (Version 1)
Quarter: 2024Q3

REPORT INFORMATION
  Report Type: Spontaneous
  Country: US (occurrence: US)
  Receive Date: 20240816
  Receipt Date: 20240816
  Transmission Date: 20241017
  Serious: No
  Sender: PFIZER
  Company Number: US-PFIZER INC-202400236995

PATIENT
  Age: 62 Year
  Sex: Male

DRUGS (1)
  1. CIBINQO [Suspect]
     Active Substance: ABROCITINIB
     Indication: Dermatitis atopic
     Dosage: UNK
     Dates: start: 2024

REACTIONS (1)
  - Condition aggravated [Unknown]
